FAERS Safety Report 6516937-3 (Version None)
Quarter: 2009Q4

REPORT INFORMATION
  Report Type: 
  Country: None (occurrence: None)
  Receive Date: 20091223
  Receipt Date: 20091211
  Transmission Date: 20100525
  Serious: Yes (Other)
  Sender: FDA-Public Use
  Company Number: JP-PFIZER INC-2009304818

PATIENT

DRUGS (4)
  1. ALDACTONE [Suspect]
     Dosage: UNK
     Route: 048
     Dates: end: 20091127
  2. DECADRON [Concomitant]
  3. HARNAL [Concomitant]
     Route: 048
  4. OLMETEC [Concomitant]
     Route: 048

REACTIONS (1)
  - PLATELET COUNT DECREASED [None]
